FAERS Safety Report 9154522 (Version 1)
Quarter: 2013Q1

REPORT INFORMATION
  Report Type: Spontaneous
  Country: US (occurrence: None)
  Receive Date: 20130306
  Receipt Date: 20130306
  Transmission Date: 20140127
  Serious: Yes (Hospitalization, Other)
  Sender: FDA-Public Use
  Company Number: None

PATIENT
  Age: 52 Year
  Sex: Female

DRUGS (1)
  1. VANCOMYCIN [Suspect]

REACTIONS (4)
  - Blood creatinine increased [None]
  - Lethargy [None]
  - Dehydration [None]
  - Hallucination [None]
